FAERS Safety Report 7576387-8 (Version None)
Quarter: 2011Q2

REPORT INFORMATION
  Report Type: 
  Country: None (occurrence: None)
  Receive Date: 20110628
  Receipt Date: 20110616
  Transmission Date: 20111010
  Serious: Yes (Life-Threatening, Hospitalization)
  Sender: FDA-Public Use
  Company Number: DE-BAYER-2011-052443

PATIENT
  Age: 45 Year
  Sex: Female

DRUGS (2)
  1. DROSPIRENONE AND ETHINYL ESTRADIOL [Suspect]
     Indication: CONTRACEPTION
     Dosage: UNK
     Dates: start: 20100401, end: 20100901
  2. SIMVASTATIN [Concomitant]

REACTIONS (3)
  - MUSCULAR WEAKNESS [None]
  - APHASIA [None]
  - TRANSIENT ISCHAEMIC ATTACK [None]
